FAERS Safety Report 8862182 (Version 1)
Quarter: 2012Q4

REPORT INFORMATION
  Report Type: 
  Country: US (occurrence: US)
  Receive Date: 20121026
  Receipt Date: 20121026
  Transmission Date: 20130627
  Serious: Yes (Other)
  Sender: FDA-Public Use
  Company Number: US-PFIZER INC-2012262269

PATIENT
  Age: 43 Year
  Sex: Male

DRUGS (3)
  1. NELFINAVIR MESILATE [Suspect]
     Indication: ANTIRETROVIRAL THERAPY
     Dosage: 1250 mg, 2x/day
  2. LAMIVUDINE [Suspect]
     Indication: ANTIRETROVIRAL THERAPY
     Dosage: 150 mg, 2x/day
  3. STAVUDINE [Suspect]
     Indication: ANTIRETROVIRAL THERAPY
     Dosage: 40 mg, 2x/day

REACTIONS (3)
  - Immune reconstitution inflammatory syndrome [Unknown]
  - Myelopathy [Unknown]
  - Leukoencephalopathy [Unknown]
